FAERS Safety Report 15717165 (Version 1)
Quarter: 2018Q4

REPORT INFORMATION
  Report Type: Spontaneous
  Country: US (occurrence: US)
  Receive Date: 20181213
  Receipt Date: 20181213
  Transmission Date: 20190205
  Serious: No
  Sender: FDA-Public Use
  Company Number: US-BAYER-2018-232760

PATIENT
  Age: 78 Year
  Sex: Female
  Weight: 63 kg

DRUGS (1)
  1. MIRALAX [Suspect]
     Active Substance: POLYETHYLENE GLYCOL 3350
     Dosage: 17 G  IN A 4-8 OZ BEVERAGE DOSE
     Route: 048
     Dates: start: 201812

REACTIONS (3)
  - Pain [Unknown]
  - Product prescribing issue [Unknown]
  - Diarrhoea [Unknown]
